FAERS Safety Report 5009038-7 (Version None)
Quarter: 2006Q2

REPORT INFORMATION
  Report Type: 
  Country: None (occurrence: None)
  Receive Date: 20060404
  Receipt Date: 20051111
  Transmission Date: 20061013
  Serious: No
  Sender: FDA-Public Use
  Company Number: US200511000658

PATIENT
  Sex: 0

DRUGS (3)
  1. CYMBALTA [Suspect]
     Indication: COMPLEX REGIONAL PAIN SYNDROME
     Dosage: 60 MG
     Dates: start: 20050901
  2. DARVOCET-N (DEXTROPROPOPOXYPHENE NAPSILATE, PARACETAMOL) [Concomitant]
  3. FLEXERIL [Concomitant]

REACTIONS (4)
  - EYE PAIN [None]
  - HEADACHE [None]
  - NAUSEA [None]
  - VOMITING [None]
